FAERS Safety Report 9068269 (Version 1)
Quarter: 2013Q1

REPORT INFORMATION
  Report Type: Spontaneous
  Country: FR (occurrence: FR)
  Receive Date: 20130128
  Receipt Date: 20130128
  Transmission Date: 20140127
  Serious: Yes (Hospitalization)
  Sender: FDA-Public Use
  Company Number: FR-PFIZER INC-2013027123

PATIENT
  Age: 80 Year
  Sex: Female

DRUGS (14)
  1. TRIFLUCAN [Suspect]
     Dosage: UNK
     Route: 048
     Dates: start: 20121029, end: 20121113
  2. NIPENT [Suspect]
     Indication: HAIRY CELL LEUKAEMIA
     Dosage: 6 MG, SINGLE
     Dates: start: 20121105, end: 20121105
  3. PREVISCAN [Suspect]
     Dosage: UNK
     Route: 048
     Dates: start: 20121029, end: 20121113
  4. CORDARONE [Concomitant]
     Dosage: UNK
     Dates: start: 20121029
  5. ORACILLINE [Concomitant]
  6. OROCAL [Concomitant]
  7. NEURONTIN [Concomitant]
  8. TAHOR [Concomitant]
  9. INEXIUM [Concomitant]
  10. NEBIVOLOL [Concomitant]
  11. VITAMIN B12 [Concomitant]
  12. IXPRIM [Concomitant]
  13. FORLAX [Concomitant]
  14. DAFALGAN [Concomitant]

REACTIONS (1)
  - Toxic skin eruption [Recovered/Resolved]
